FAERS Safety Report 16820467 (Version 2)
Quarter: 2021Q3

REPORT INFORMATION
  Report Type: Report from Study
  Country: CA (occurrence: CA)
  Receive Date: 20190918
  Receipt Date: 20210920
  Transmission Date: 20211014
  Serious: Yes (Other)
  Sender: FDA-Public Use
  Company Number: CA-ORION CORPORATION ORION PHARMA-TREX2019-3441

PATIENT
  Age: 53 Year
  Sex: Female
  Weight: 77 kg

DRUGS (23)
  1. RITUXAN [Suspect]
     Active Substance: RITUXIMAB
     Dosage: DAY 1 AND DAY 15
     Route: 042
     Dates: start: 20140304
  2. RITUXAN [Suspect]
     Active Substance: RITUXIMAB
     Dosage: DAY 1 AND DAY 15
     Route: 042
     Dates: start: 20140218
  3. RITUXAN [Suspect]
     Active Substance: RITUXIMAB
     Dosage: DAY 1 AND DAY 15
     Route: 042
     Dates: start: 20190812
  4. VITAMIN B12 [Concomitant]
     Active Substance: CYANOCOBALAMIN
     Route: 065
  5. RITUXAN [Suspect]
     Active Substance: RITUXIMAB
     Dosage: DAY 1 AND DAY 15
     Route: 042
     Dates: start: 20151015
  6. SYNTHROID [Concomitant]
     Active Substance: LEVOTHYROXINE SODIUM
     Route: 065
  7. ACETAMINOPHEN. [Concomitant]
     Active Substance: ACETAMINOPHEN
     Indication: PREMEDICATION
     Route: 065
     Dates: start: 20120314
  8. DIPHENHYDRAMINE HYDROCHLORIDE. [Concomitant]
     Active Substance: DIPHENHYDRAMINE HYDROCHLORIDE
     Indication: PREMEDICATION
     Route: 065
     Dates: start: 20120314
  9. OMEGA 9 FATTY ACIDS [Concomitant]
     Route: 065
  10. CALCIUM [Concomitant]
     Active Substance: CALCIUM
     Route: 065
  11. RITUXAN [Suspect]
     Active Substance: RITUXIMAB
     Indication: RHEUMATOID ARTHRITIS
     Dosage: DAY 1 AND DAY 15
     Route: 042
     Dates: start: 20120314, end: 20121213
  12. RITUXAN [Suspect]
     Active Substance: RITUXIMAB
     Dosage: DAY 1 AND DAY 15
     Route: 042
     Dates: start: 20181013
  13. ENALAPRIL [Concomitant]
     Active Substance: ENALAPRIL
     Indication: BLOOD PRESSURE ABNORMAL
     Route: 065
  14. ADALAT [Concomitant]
     Active Substance: NIFEDIPINE
     Route: 065
  15. METHOTREXATE (TRADE NAME UNKNOWN) [Suspect]
     Active Substance: METHOTREXATE
     Indication: PRODUCT USED FOR UNKNOWN INDICATION
     Route: 065
     Dates: start: 201310
  16. DULOXETINE HYDROCHLORIDE. [Concomitant]
     Active Substance: DULOXETINE HYDROCHLORIDE
     Route: 065
  17. METHYLPREDNISOLONE. [Concomitant]
     Active Substance: METHYLPREDNISOLONE
     Indication: PREMEDICATION
     Route: 042
  18. METHYLPREDNISOLONE. [Concomitant]
     Active Substance: METHYLPREDNISOLONE
     Route: 042
     Dates: start: 20120214
  19. OMEGA 3 FISH OIL [Concomitant]
     Active Substance: FISH OIL\OMEGA-3 FATTY ACIDS
     Route: 065
  20. PRAVASTATIN. [Concomitant]
     Active Substance: PRAVASTATIN
     Route: 065
  21. RITUXAN [Suspect]
     Active Substance: RITUXIMAB
     Dosage: DAY 1 AND DAY 15
     Route: 042
     Dates: start: 20161024
  22. CYMBALTA [Concomitant]
     Active Substance: DULOXETINE HYDROCHLORIDE
     Route: 065
  23. FOLIC ACID. [Suspect]
     Active Substance: FOLIC ACID
     Indication: PRODUCT USED FOR UNKNOWN INDICATION
     Route: 065
     Dates: start: 201310

REACTIONS (22)
  - Somnolence [Not Recovered/Not Resolved]
  - Hepatic enzyme increased [Unknown]
  - Blood pressure systolic abnormal [Unknown]
  - Acne [Recovering/Resolving]
  - Abdominal pain [Unknown]
  - Abdominal pain upper [Recovered/Resolved]
  - Blood pressure increased [Not Recovered/Not Resolved]
  - Nodule [Not Recovered/Not Resolved]
  - Oxygen saturation decreased [Unknown]
  - Blood pressure systolic increased [Unknown]
  - Urinary tract infection [Unknown]
  - Pharyngeal paraesthesia [Recovered/Resolved]
  - Back pain [Not Recovered/Not Resolved]
  - Cough [Unknown]
  - Fungal infection [Not Recovered/Not Resolved]
  - Rash [Unknown]
  - Nasopharyngitis [Unknown]
  - Diabetes mellitus [Not Recovered/Not Resolved]
  - Diarrhoea [Recovered/Resolved]
  - Rheumatoid arthritis [Not Recovered/Not Resolved]
  - Skin infection [Not Recovered/Not Resolved]
  - Paraesthesia ear [Recovered/Resolved]

NARRATIVE: CASE EVENT DATE: 201211
